FAERS Safety Report 25019369 (Version 4)
Quarter: 2025Q2

REPORT INFORMATION
  Report Type: Spontaneous
  Country: US (occurrence: US)
  Receive Date: 20250227
  Receipt Date: 20250404
  Transmission Date: 20250717
  Serious: Yes (Other)
  Sender: CALLIDITAS THERAPEUTICS
  Company Number: US-Calliditas-2025CAL00533

PATIENT
  Age: 58 Year
  Sex: Female

DRUGS (10)
  1. TARPEYO [Suspect]
     Active Substance: BUDESONIDE
     Indication: IgA nephropathy
     Route: 048
     Dates: start: 20250129, end: 20250131
  2. TARPEYO [Suspect]
     Active Substance: BUDESONIDE
     Indication: IgA nephropathy
     Route: 048
     Dates: start: 20250211
  3. TARPEYO [Suspect]
     Active Substance: BUDESONIDE
     Indication: IgA nephropathy
     Route: 048
     Dates: start: 20250201, end: 20250210
  4. FARXIGA [Concomitant]
     Active Substance: DAPAGLIFLOZIN PROPANEDIOL
  5. REPATHA [Concomitant]
     Active Substance: EVOLOCUMAB
  6. CALCITRIOL [Concomitant]
     Active Substance: CALCITRIOL
  7. DULOXETINE [Concomitant]
     Active Substance: DULOXETINE
  8. CHLORTHALIDONE [Concomitant]
     Active Substance: CHLORTHALIDONE
  9. ROGAINE [Concomitant]
     Active Substance: MINOXIDIL
  10. LOSARTAN [Concomitant]
     Active Substance: LOSARTAN

REACTIONS (10)
  - Blood pressure increased [Recovering/Resolving]
  - Chest discomfort [Recovering/Resolving]
  - Nasal congestion [Recovering/Resolving]
  - Headache [Recovering/Resolving]
  - Dysphonia [Recovering/Resolving]
  - Immunodeficiency [Recovering/Resolving]
  - Impaired healing [Recovering/Resolving]
  - Accidental underdose [Recovered/Resolved]
  - Asthenia [Recovering/Resolving]
  - Flushing [Recovering/Resolving]

NARRATIVE: CASE EVENT DATE: 20250201
